FAERS Safety Report 25573947 (Version 1)
Quarter: 2025Q3

REPORT INFORMATION
  Report Type: Spontaneous
  Country: US (occurrence: US)
  Receive Date: 20250717
  Receipt Date: 20250717
  Transmission Date: 20251021
  Serious: Yes (Hospitalization, Other)
  Sender: MERCK SHARP & DOHME LLC
  Company Number: US-009507513-2309671

PATIENT
  Sex: Male

DRUGS (2)
  1. BELZUTIFAN [Suspect]
     Active Substance: BELZUTIFAN
  2. LENVATINIB [Suspect]
     Active Substance: LENVATINIB
     Route: 048

REACTIONS (10)
  - Limb operation [Unknown]
  - Bone cancer [Unknown]
  - Myalgia [Unknown]
  - Arthralgia [Unknown]
  - Oxygen saturation decreased [Unknown]
  - Shoulder operation [Unknown]
  - Muscular weakness [Unknown]
  - Groin pain [Unknown]
  - Arthralgia [Unknown]
  - Dyspnoea [Unknown]
